FAERS Safety Report 9640095 (Version 2)
Quarter: 2013Q4

REPORT INFORMATION
  Report Type: Report from Study
  Country: US (occurrence: US)
  Receive Date: 20131023
  Receipt Date: 20131023
  Transmission Date: 20140711
  Serious: Yes (Death, Hospitalization, Other)
  Sender: FDA-Public Use
  Company Number: PHHO2012US005598

PATIENT
  Age: 47 Year
  Sex: Female

DRUGS (1)
  1. SOM230 [Suspect]
     Indication: PANCREATIC CARCINOMA
     Dosage: 900 UG, BID
     Route: 058
     Dates: start: 20120409, end: 20120409

REACTIONS (9)
  - Nausea [Recovered/Resolved]
  - Vomiting [Recovered/Resolved]
  - Hyperglycaemia [Recovered/Resolved]
  - Death [Fatal]
  - Obstruction gastric [Recovered/Resolved]
  - Hyponatraemia [Recovered/Resolved]
  - Biliary tract infection [Not Recovered/Not Resolved]
  - Ascites [Not Recovered/Not Resolved]
  - Hypotension [Unknown]
